FAERS Safety Report 21390243 (Version 1)
Quarter: 2022Q3

REPORT INFORMATION
  Report Type: Spontaneous
  Country: US (occurrence: US)
  Receive Date: 20220929
  Receipt Date: 20220929
  Transmission Date: 20221026
  Serious: No
  Sender: FDA-Public Use
  Company Number: US-Indivior Limited-INDV-133069-2022

PATIENT
  Age: 36 Year
  Sex: Male
  Weight: 72.562 kg

DRUGS (1)
  1. PERSERIS [Suspect]
     Active Substance: RISPERIDONE
     Indication: Schizophrenia
     Dosage: 90 MILLIGRAM, QMO
     Route: 030
     Dates: start: 20220217

REACTIONS (6)
  - Product administered at inappropriate site [Recovered/Resolved]
  - Incorrect route of product administration [Recovered/Resolved]
  - Somnolence [Unknown]
  - Restlessness [Unknown]
  - Anxiety [Unknown]
  - Blood pressure increased [Unknown]

NARRATIVE: CASE EVENT DATE: 20220201
